FAERS Safety Report 4588449-8 (Version None)
Quarter: 2005Q1

REPORT INFORMATION
  Report Type: 
  Country: None (occurrence: None)
  Receive Date: 20050215
  Receipt Date: 20050215
  Transmission Date: 20050727
  Serious: Yes (Other)
  Sender: FDA-Public Use
  Company Number: None

PATIENT
  Age: 83 Year
  Sex: Male
  Weight: 65.318 kg

DRUGS (1)
  1. CIPRO [Suspect]
     Indication: CYSTITIS
     Dosage: BY MOUTH
     Dates: start: 20040910, end: 20040921

REACTIONS (3)
  - EXOSTOSIS [None]
  - GAIT DISTURBANCE [None]
  - PAIN IN EXTREMITY [None]
